FAERS Safety Report 4549693-9 (Version None)
Quarter: 2005Q1

REPORT INFORMATION
  Report Type: 
  Country: None (occurrence: None)
  Receive Date: 20050107
  Receipt Date: 20041227
  Transmission Date: 20050727
  Serious: Yes (Hospitalization, Disabling)
  Sender: FDA-Public Use
  Company Number: 200416274BCC

PATIENT
  Age: 65 Year
  Sex: Male
  Weight: 103.8737 kg

DRUGS (9)
  1. ALEVE [Suspect]
     Indication: PAIN
     Dosage: 440 MG, TOTAL DAILY, ORAL
     Route: 048
  2. MULTI-VITAMIN [Concomitant]
  3. METFORMIN HCL [Concomitant]
  4. PLAVIX [Concomitant]
  5. LISINOPRIL [Concomitant]
  6. HYDROCHLOROTHIAZIDE [Concomitant]
  7. GLYBURIDE [Concomitant]
  8. METOPROLOL [Concomitant]
  9. SIMVASTATIN [Concomitant]

REACTIONS (1)
  - MYOCARDIAL INFARCTION [None]
